FAERS Safety Report 12340593 (Version 1)
Quarter: 2016Q2

REPORT INFORMATION
  Report Type: Spontaneous
  Country: US (occurrence: US)
  Receive Date: 20160506
  Receipt Date: 20160506
  Transmission Date: 20160815
  Serious: Yes (Other)
  Sender: FDA-Public Use
  Company Number: US-RECKITT BENCKISER HEALTHCARE INT LIMITED-RB-85275-2016

PATIENT
  Age: 34 Year
  Sex: Female

DRUGS (1)
  1. DELSYM [Suspect]
     Active Substance: DEXTROMETHORPHAN
     Indication: PRODUCT USED FOR UNKNOWN INDICATION
     Dosage: TOOK ABOUT HALF OF THE BOTTLE
     Route: 065
     Dates: start: 20160427, end: 20160427

REACTIONS (4)
  - Overdose [Recovering/Resolving]
  - Tremor [Recovering/Resolving]
  - Contraindication to medical treatment [Recovering/Resolving]
  - Vision blurred [Recovering/Resolving]

NARRATIVE: CASE EVENT DATE: 201604
